FAERS Safety Report 20035396 (Version 1)
Quarter: 2021Q4

REPORT INFORMATION
  Report Type: Report from Study
  Country: US (occurrence: US)
  Receive Date: 20211104
  Receipt Date: 20211104
  Transmission Date: 20220303
  Serious: Yes (Hospitalization, Other)
  Sender: FDA-Public Use
  Company Number: US-TAKEDA-US201844569

PATIENT
  Age: 50 Year
  Sex: Female
  Weight: 55 kg

DRUGS (17)
  1. TEDUGLUTIDE [Suspect]
     Active Substance: TEDUGLUTIDE
     Indication: Short-bowel syndrome
     Dosage: 2.8 MG (DAILY DOSE 0.05 MG/KG), 4 DOSES PER WEEK
     Route: 065
     Dates: start: 20130401
  2. TEDUGLUTIDE [Suspect]
     Active Substance: TEDUGLUTIDE
     Indication: Short-bowel syndrome
     Dosage: 2.8 MG (DAILY DOSE 0.05 MG/KG), 4 DOSES PER WEEK
     Route: 065
     Dates: start: 20130401
  3. TEDUGLUTIDE [Suspect]
     Active Substance: TEDUGLUTIDE
     Indication: Short-bowel syndrome
     Dosage: 2.8 MG (DAILY DOSE 0.05 MG/KG), 4 DOSES PER WEEK
     Route: 065
     Dates: start: 20130401
  4. TEDUGLUTIDE [Suspect]
     Active Substance: TEDUGLUTIDE
     Indication: Short-bowel syndrome
     Dosage: 2.8 MG (DAILY DOSE 0.05 MG/KG), 4 DOSES PER WEEK
     Route: 065
     Dates: start: 20130401
  5. TEDUGLUTIDE [Suspect]
     Active Substance: TEDUGLUTIDE
     Dosage: 2.8 MG (DAILY DOSE 0.05 MG/KG), 4 DOSES PER WEEK
     Route: 065
     Dates: start: 20130401, end: 201808
  6. TEDUGLUTIDE [Suspect]
     Active Substance: TEDUGLUTIDE
     Dosage: 2.8 MG (DAILY DOSE 0.05 MG/KG), 4 DOSES PER WEEK
     Route: 065
     Dates: start: 20130401, end: 201808
  7. TEDUGLUTIDE [Suspect]
     Active Substance: TEDUGLUTIDE
     Dosage: 2.8 MG (DAILY DOSE 0.05 MG/KG), 4 DOSES PER WEEK
     Route: 065
     Dates: start: 20130401, end: 201808
  8. TEDUGLUTIDE [Suspect]
     Active Substance: TEDUGLUTIDE
     Dosage: 2.8 MG (DAILY DOSE 0.05 MG/KG), 4 DOSES PER WEEK
     Route: 065
     Dates: start: 20130401, end: 201808
  9. PHENERGAN W/ CODEINE [Concomitant]
     Active Substance: CODEINE PHOSPHATE\PROMETHAZINE HYDROCHLORIDE
     Indication: Cough
  10. DIETARY SUPPLEMENT [Concomitant]
     Active Substance: DIETARY SUPPLEMENT
     Indication: Diarrhoea
  11. CIPROFLOXACIN [Concomitant]
     Active Substance: CIPROFLOXACIN
     Indication: Acidosis
  12. METRONIDAZOLE [Concomitant]
     Active Substance: METRONIDAZOLE
     Indication: Acidosis
     Dosage: 500 MILLIGRAM, Q12H
     Route: 048
     Dates: start: 20200514, end: 20200523
  13. METRONIDAZOLE [Concomitant]
     Active Substance: METRONIDAZOLE
     Indication: Diarrhoea
  14. CLINDAMYCIN [Concomitant]
     Active Substance: CLINDAMYCIN
     Indication: Skin infection
     Dosage: 300 MILLIGRAM, QID
     Route: 048
     Dates: start: 20180724, end: 201808
  15. CLINDAMYCIN [Concomitant]
     Active Substance: CLINDAMYCIN
     Indication: Catheter site infection
  16. MAGNESIUM OXIDE [Concomitant]
     Active Substance: MAGNESIUM OXIDE
     Indication: Hypomagnesaemia
     Dosage: 400 MILLIGRAM, QD
     Route: 048
     Dates: start: 20190325, end: 20190401
  17. CIPRO [Concomitant]
     Active Substance: CIPROFLOXACIN HYDROCHLORIDE
     Indication: Diarrhoea
     Dosage: 500 MILLIGRAM, Q12H
     Route: 048
     Dates: start: 20200514, end: 20200523

REACTIONS (1)
  - Vascular device infection [Recovered/Resolved]

NARRATIVE: CASE EVENT DATE: 20180724
